FAERS Safety Report 11362717 (Version 1)
Quarter: 2015Q3

REPORT INFORMATION
  Report Type: Spontaneous
  Country: US (occurrence: US)
  Receive Date: 20150810
  Receipt Date: 20150810
  Transmission Date: 20151125
  Serious: Yes (Hospitalization, Other)
  Sender: FDA-Public Use
  Company Number: US-GLAXOSMITHKLINE-US2015GSK113845

PATIENT
  Age: 75 Year
  Sex: Female

DRUGS (2)
  1. PROPAFENONE HYDROCHLORIDE. [Suspect]
     Active Substance: PROPAFENONE HYDROCHLORIDE
     Indication: ATRIAL FIBRILLATION
     Dosage: UNK
     Dates: start: 1985
  2. PROPAFENONE HYDROCHLORIDE. [Suspect]
     Active Substance: PROPAFENONE HYDROCHLORIDE
     Dosage: UNK
     Dates: start: 1979

REACTIONS (3)
  - Bladder cancer [Unknown]
  - Coronary artery bypass [Unknown]
  - Biopsy bladder [Unknown]

NARRATIVE: CASE EVENT DATE: 20150605
